FAERS Safety Report 6188244-2 (Version None)
Quarter: 2009Q2

REPORT INFORMATION
  Report Type: 
  Country: None (occurrence: None)
  Receive Date: 20090511
  Receipt Date: 20090430
  Transmission Date: 20091009
  Serious: Yes (Life-Threatening, Disabling)
  Sender: FDA-Public Use
  Company Number: 2009-00212

PATIENT
  Age: 69 Year
  Sex: Female
  Weight: 45 kg

DRUGS (12)
  1. VELCADE [Suspect]
     Indication: MULTIPLE MYELOMA
     Dosage: 1.8 MG, INTRAVENOUS
     Route: 042
     Dates: start: 20081212, end: 20081215
  2. DECADRON [Suspect]
     Indication: MULTIPLE MYELOMA
     Dosage: 20 MG, INTRAVENOUS
     Route: 042
     Dates: start: 20081212, end: 20081224
  3. VITAMEDIN INTRAVENOUS (PYRIDOXINE HYDROCHLORIDE, THIAMINE DISULFIDE,CY [Concomitant]
  4. AMINO ACIDS [Concomitant]
  5. LEVOTHYROXINE SODIUM [Concomitant]
  6. LIPITOR [Concomitant]
  7. TANADOPA (DOCARPAMINE) [Concomitant]
  8. SULFAMETHOXAZOLE AND TRIMETHOPRIM [Concomitant]
  9. LEVOFLOXACIN [Concomitant]
  10. ITRACONAZOLE [Concomitant]
  11. RABEPRAZOLE SODIUM [Concomitant]
  12. DEPAS (ETIZOLAM) [Concomitant]

REACTIONS (17)
  - ABDOMINAL PAIN UPPER [None]
  - ASTHMA [None]
  - BEDRIDDEN [None]
  - BLOOD AMYLASE INCREASED [None]
  - BRONCHOPULMONARY ASPERGILLOSIS [None]
  - BRONCHOSTENOSIS [None]
  - CAPILLARY LEAK SYNDROME [None]
  - CARDIAC ASTHMA [None]
  - CYTOMEGALOVIRUS VIRAEMIA [None]
  - DIARRHOEA [None]
  - HYPOTENSION [None]
  - NEURALGIA [None]
  - NEUROPATHY PERIPHERAL [None]
  - OLIGURIA [None]
  - PLEURAL EFFUSION [None]
  - PNEUMONIA [None]
  - URINARY TRACT INFECTION [None]
